FAERS Safety Report 10294817 (Version 4)
Quarter: 2020Q3

REPORT INFORMATION
  Report Type: Spontaneous
  Country: US (occurrence: US)
  Receive Date: 20140710
  Receipt Date: 20200807
  Transmission Date: 20201102
  Serious: No
  Sender: FDA-Public Use
  Company Number: US-PURDUE-USA-2014-0111924

PATIENT
  Sex: Female
  Weight: 62.13 kg

DRUGS (7)
  1. BUTRANS [Suspect]
     Active Substance: BUPRENORPHINE
     Indication: PAIN
     Dosage: 5 MCG/HR, WEEKLY
     Route: 062
     Dates: start: 201506, end: 201606
  2. NORCO [Concomitant]
     Active Substance: ACETAMINOPHEN\HYDROCODONE BITARTRATE
     Dosage: (0.5 X 10/325 MG) 5/162.5 MG, Q6? 8H PRN
     Route: 065
  3. DIVIGEL [Concomitant]
     Active Substance: ESTRADIOL
     Indication: PRODUCT USED FOR UNKNOWN INDICATION
     Dosage: UNK
     Route: 065
  4. NORCO [Concomitant]
     Active Substance: ACETAMINOPHEN\HYDROCODONE BITARTRATE
     Indication: PAIN
     Dosage: 5 MG, UNK
     Route: 065
  5. DANAZOL. [Concomitant]
     Active Substance: DANAZOL
     Indication: PRODUCT USED FOR UNKNOWN INDICATION
     Dosage: UNK
     Route: 065
  6. BUTRANS [Suspect]
     Active Substance: BUPRENORPHINE
     Indication: FIBROMYALGIA
     Dosage: 10 MCG/HR, WEEKLY
     Route: 062
     Dates: start: 20140713
  7. BUTRANS [Suspect]
     Active Substance: BUPRENORPHINE
     Dosage: 20 MCG/HR, UNK
     Route: 062

REACTIONS (9)
  - Application site swelling [Unknown]
  - Application site urticaria [Recovered/Resolved]
  - Application site rash [Unknown]
  - Product adhesion issue [Recovered/Resolved]
  - Application site discolouration [Unknown]
  - Therapeutic product effect increased [Recovered/Resolved]
  - Application site pruritus [Recovered/Resolved]
  - Migraine [Recovered/Resolved]
  - Wrong technique in product usage process [Recovered/Resolved]
